FAERS Safety Report 8383561-X (Version None)
Quarter: 2012Q2

REPORT INFORMATION
  Report Type: 
  Country: None (occurrence: None)
  Receive Date: 20120524
  Receipt Date: 20120520
  Transmission Date: 20120825
  Serious: No
  Sender: FDA-Public Use
  Company Number: US-BAYER-2012-050341

PATIENT
  Age: 64 Year
  Sex: Female
  Weight: 59 kg

DRUGS (1)
  1. NAPROXEN SODIUM [Suspect]
     Indication: PAIN
     Dosage: UNK, QID
     Route: 048
     Dates: start: 20120501, end: 20120518

REACTIONS (2)
  - RASH GENERALISED [None]
  - RASH ERYTHEMATOUS [None]
